FAERS Safety Report 12745155 (Version 1)
Quarter: 2016Q3

REPORT INFORMATION
  Report Type: Spontaneous
  Country: JP (occurrence: JP)
  Receive Date: 20160915
  Receipt Date: 20160915
  Transmission Date: 20161109
  Serious: Yes (Hospitalization, Other)
  Sender: FDA-Public Use
  Company Number: JP-ALKEM LABORATORIES LIMITED-JP-ALKEM-2016-00167

PATIENT
  Age: 53 Year
  Sex: Female

DRUGS (18)
  1. ROPINIROLE. [Suspect]
     Active Substance: ROPINIROLE
     Dosage: 6 MG, UNK
     Dates: start: 201411
  2. CARBIDOPA AND LEVODOPA [Suspect]
     Active Substance: CARBIDOPA\LEVODOPA
     Dosage: 600 MG, UNK
     Dates: start: 201405
  3. RISPERIDONE. [Suspect]
     Active Substance: RISPERIDONE
     Indication: PRODUCT USED FOR UNKNOWN INDICATION
     Dosage: 2 MG, UNK
  4. BROTIZOLAM [Concomitant]
     Active Substance: BROTIZOLAM
     Indication: PRODUCT USED FOR UNKNOWN INDICATION
     Dosage: 0.25 MG, UNK
  5. BIPERIDEN [Concomitant]
     Active Substance: BIPERIDEN
     Indication: PARKINSON^S DISEASE
     Dosage: 2 MG, UNK
  6. PEROSPIRONE HYDROCHLORIDE [Concomitant]
     Active Substance: PEROSPIRONE HYDROCHLORIDE
     Indication: PRODUCT USED FOR UNKNOWN INDICATION
     Dosage: 8-16 MG
     Dates: start: 2013
  7. OLANZAPINE. [Suspect]
     Active Substance: OLANZAPINE
     Indication: PRODUCT USED FOR UNKNOWN INDICATION
     Dosage: 5 - 10 MG
  8. ROPINIROLE. [Suspect]
     Active Substance: ROPINIROLE
     Indication: DEMENTIA WITH LEWY BODIES
     Dosage: 1 MG, UNK
     Dates: start: 201411
  9. CARBIDOPA AND LEVODOPA [Suspect]
     Active Substance: CARBIDOPA\LEVODOPA
     Dosage: 100 MG, UNK
     Dates: start: 201309
  10. OLANZAPINE. [Suspect]
     Active Substance: OLANZAPINE
     Dosage: 5 - 10 MG
     Dates: start: 2013
  11. CLONAZEPAM. [Concomitant]
     Active Substance: CLONAZEPAM
     Indication: PRODUCT USED FOR UNKNOWN INDICATION
     Dosage: 1.5 MG, UNK
  12. BIPERIDEN [Concomitant]
     Active Substance: BIPERIDEN
     Dosage: 6 MG, UNK
     Dates: start: 2013
  13. TIAPRIDE HYDROCHLORIDE [Concomitant]
     Active Substance: TIAPRIDE HYDROCHLORIDE
     Indication: PRODUCT USED FOR UNKNOWN INDICATION
     Dosage: 50-150 MG
     Dates: start: 2013
  14. QUETIAPINE FUMARATE. [Suspect]
     Active Substance: QUETIAPINE FUMARATE
     Indication: PRODUCT USED FOR UNKNOWN INDICATION
     Dosage: 75 MG, UNK
  15. CARBIDOPA AND LEVODOPA [Suspect]
     Active Substance: CARBIDOPA\LEVODOPA
     Indication: DEMENTIA WITH LEWY BODIES
     Dosage: 600 MG, UNK
  16. BIPERIDEN [Concomitant]
     Active Substance: BIPERIDEN
     Dosage: 3 MG, UNK
  17. CARBIDOPA AND LEVODOPA [Suspect]
     Active Substance: CARBIDOPA\LEVODOPA
     Dosage: 200-300 MG
     Dates: start: 2013
  18. ROTIGOTINE [Concomitant]
     Active Substance: ROTIGOTINE
     Indication: PRODUCT USED FOR UNKNOWN INDICATION
     Dosage: UNKNOWN
     Dates: start: 2014

REACTIONS (7)
  - Dementia [None]
  - Condition aggravated [Recovering/Resolving]
  - Drug interaction [Unknown]
  - Dyskinesia [Recovering/Resolving]
  - Oromandibular dystonia [Recovering/Resolving]
  - Drug hypersensitivity [Recovering/Resolving]
  - Altered state of consciousness [Recovering/Resolving]
